FAERS Safety Report 16039340 (Version 1)
Quarter: 2019Q2

REPORT INFORMATION
  Report Type: Spontaneous
  Country: US (occurrence: US)
  Receive Date: 20190305
  Receipt Date: 20190305
  Transmission Date: 20190711
  Serious: Yes (Hospitalization)
  Sender: FDA-Public Use
  Company Number: None

PATIENT
  Age: 50 Year
  Sex: Female

DRUGS (7)
  1. ESTRADIOL. [Concomitant]
     Active Substance: ESTRADIOL
  2. ZANTAC [Concomitant]
     Active Substance: RANITIDINE HYDROCHLORIDE
  3. CIPROFLOXACN [Concomitant]
     Active Substance: CIPROFLOXACIN
  4. MILK THISTLE CAP [Concomitant]
  5. MOMETASONE [Concomitant]
     Active Substance: MOMETASONE
  6. GABAPENTIN. [Concomitant]
     Active Substance: GABAPENTIN
  7. SIMPONI [Suspect]
     Active Substance: GOLIMUMAB
     Indication: PSORIATIC ARTHROPATHY
     Dosage: ?          OTHER FREQUENCY:EVERY MONTH;?
     Route: 058
     Dates: start: 20170622

REACTIONS (1)
  - Influenza [None]

NARRATIVE: CASE EVENT DATE: 20190304
